FAERS Safety Report 4637074-9 (Version None)
Quarter: 2005Q2

REPORT INFORMATION
  Report Type: 
  Country: None (occurrence: None)
  Receive Date: 20050325
  Receipt Date: 20050118
  Transmission Date: 20051028
  Serious: Yes (Hospitalization)
  Sender: FDA-Public Use
  Company Number: USA041081970

PATIENT
  Age: 73 Year
  Sex: Female

DRUGS (8)
  1. FORTEO [Suspect]
     Indication: OSTEOPOROSIS
     Dates: start: 20040920
  2. CARDIZEM [Concomitant]
  3. ZESTRIL [Concomitant]
  4. PROTONIX [Concomitant]
  5. ASPIRIN [Concomitant]
  6. XANAX (ALPRAZOLAM DUM) [Concomitant]
  7. ALBUTEROL SULFATE W/IPRATROPIUM BROMIDE [Concomitant]
  8. CALICUM CARBONATE [Concomitant]

REACTIONS (4)
  - BLOOD CREATININE INCREASED [None]
  - DYSPNOEA [None]
  - HAND FRACTURE [None]
  - HYPERCALCAEMIA [None]
